FAERS Safety Report 6639792-X (Version None)
Quarter: 2010Q1

REPORT INFORMATION
  Report Type: 
  Country: None (occurrence: None)
  Receive Date: 20100318
  Receipt Date: 20100308
  Transmission Date: 20100710
  Serious: Yes (Other)
  Sender: FDA-Public Use
  Company Number: IE-BRISTOL-MYERS SQUIBB COMPANY-15007024

PATIENT
  Age: 68 Year
  Sex: Female

DRUGS (5)
  1. DOXORUBICIN [Suspect]
     Indication: BREAST CANCER
  2. CYCLOPHOSPHAMIDE [Suspect]
     Indication: BREAST CANCER
  3. PACLITAXEL [Suspect]
     Indication: BREAST CANCER
  4. PRIMAQUINE [Suspect]
  5. PEGFILGRASTIM [Concomitant]

REACTIONS (3)
  - FEBRILE NEUTROPENIA [None]
  - METHAEMOGLOBINAEMIA [None]
  - PNEUMOCYSTIS JIROVECI PNEUMONIA [None]
